FAERS Safety Report 7422502-6 (Version None)
Quarter: 2011Q2

REPORT INFORMATION
  Report Type: 
  Country: None (occurrence: None)
  Receive Date: 20110419
  Receipt Date: 20081215
  Transmission Date: 20111010
  Serious: No
  Sender: FDA-Public Use
  Company Number: 2008BI033949

PATIENT
  Sex: Female

DRUGS (1)
  1. TYSABRI [Suspect]
     Indication: MULTIPLE SCLEROSIS
     Route: 042
     Dates: start: 20080711, end: 20090320

REACTIONS (12)
  - SPEECH DISORDER [None]
  - VISUAL IMPAIRMENT [None]
  - SENSATION OF HEAVINESS [None]
  - POLLAKIURIA [None]
  - VISUAL ACUITY REDUCED [None]
  - FATIGUE [None]
  - DRUG INEFFECTIVE [None]
  - OPTIC ATROPHY [None]
  - IMPAIRED WORK ABILITY [None]
  - FEELING ABNORMAL [None]
  - BALANCE DISORDER [None]
  - OSTEOARTHRITIS [None]
